FAERS Safety Report 24103161 (Version 2)
Quarter: 2024Q3

REPORT INFORMATION
  Report Type: Report from Study
  Country: US (occurrence: None)
  Receive Date: 20240717
  Receipt Date: 20240828
  Transmission Date: 20241017
  Serious: Yes (Other)
  Sender: ASTRAZENECA
  Company Number: 2024A160538

PATIENT
  Sex: Female

DRUGS (3)
  1. FASENRA [Suspect]
     Active Substance: BENRALIZUMAB
     Indication: Asthma
     Dosage: 30MG/ML EVERY EIGHT WEEKS
     Route: 058
  2. PREDNISONE [Concomitant]
     Active Substance: PREDNISONE
  3. MUPIROCIN [Concomitant]
     Active Substance: MUPIROCIN

REACTIONS (5)
  - Fall [Unknown]
  - Asthma [Not Recovered/Not Resolved]
  - Skin ulcer [Not Recovered/Not Resolved]
  - Bronchitis chronic [Not Recovered/Not Resolved]
  - Drug ineffective [Unknown]
